FAERS Safety Report 7170407-0 (Version None)
Quarter: 2010Q4

REPORT INFORMATION
  Report Type: 
  Country: None (occurrence: None)
  Receive Date: 20101214
  Receipt Date: 20101214
  Transmission Date: 20110411
  Serious: Yes (Life-Threatening)
  Sender: FDA-Public Use
  Company Number: None

PATIENT
  Age: 73 Year
  Sex: Male
  Weight: 111.4 kg

DRUGS (1)
  1. LYRICA [Suspect]
     Indication: NERVE INJURY
     Dosage: 1 AT BEDTIME
     Dates: start: 20101006, end: 20101012

REACTIONS (4)
  - CONTUSION [None]
  - LOSS OF CONSCIOUSNESS [None]
  - OPEN WOUND [None]
  - WOUND HAEMORRHAGE [None]
